FAERS Safety Report 10178680 (Version 1)
Quarter: 2014Q2

REPORT INFORMATION
  Report Type: Spontaneous
  Country: US (occurrence: None)
  Receive Date: 20140516
  Receipt Date: 20140516
  Transmission Date: 20141212
  Serious: Yes (Hospitalization)
  Sender: FDA-Public Use
  Company Number: None

PATIENT
  Age: 29 Year
  Sex: Male
  Weight: 58.6 kg

DRUGS (1)
  1. PRAVASTATIN 1280MG [Suspect]
     Dosage: 1280 MG/DAY DAYS 1 THROUGH 8

REACTIONS (4)
  - Pyrexia [None]
  - Neutropenia [None]
  - Hypotension [None]
  - Cellulitis [None]
